FAERS Safety Report 4912046-5 (Version None)
Quarter: 2006Q1

REPORT INFORMATION
  Report Type: 
  Country: None (occurrence: None)
  Receive Date: 20060213
  Receipt Date: 20060203
  Transmission Date: 20060701
  Serious: Yes (Hospitalization)
  Sender: FDA-Public Use
  Company Number: 2005170935

PATIENT
  Age: 55 Year
  Sex: Male
  Weight: 90 kg

DRUGS (15)
  1. LYRICA [Suspect]
     Indication: BACK PAIN
     Dosage: 300 MG (1 D),
     Dates: end: 20051212
  2. LYRICA [Suspect]
     Indication: DIABETIC NEUROPATHY
     Dosage: 300 MG (1 D),
     Dates: end: 20051212
  3. LYRICA [Suspect]
     Indication: PAIN IN EXTREMITY
     Dosage: 300 MG (1 D),
     Dates: end: 20051212
  4. LYRICA [Suspect]
     Indication: SHOULDER PAIN
     Dosage: 300 MG (1 D),
     Dates: end: 20051212
  5. ALL OTHER THERAPEUTIC PRODUCTS (ALL OTHER THERAPEUTIC PRODUCTS) [Concomitant]
  6. ALLOPURINOL [Concomitant]
  7. NORTRIPTYLINE HCL [Concomitant]
  8. BISOPROLOL (BISOPROLOL) [Concomitant]
  9. CALCITRIOL [Concomitant]
  10. CALCIUM CARBONATE (CALCIUM CARBONATE) [Concomitant]
  11. CLONAZEPAM [Concomitant]
  12. GLICLAZIDE (GLICLAZIDE) [Concomitant]
  13. METFORMIN HCL [Concomitant]
  14. PERINDOPRIL (PERINDOPRIL) [Concomitant]
  15. TAMSULOSIN HCL [Concomitant]

REACTIONS (12)
  - BURNING SENSATION [None]
  - DIFFICULTY IN WALKING [None]
  - DISORIENTATION [None]
  - DIZZINESS [None]
  - FALL [None]
  - GAIT DISTURBANCE [None]
  - HALLUCINATION, VISUAL [None]
  - INSOMNIA [None]
  - PARAESTHESIA [None]
  - PSYCHOMOTOR RETARDATION [None]
  - SOMNOLENCE [None]
  - VERTIGO [None]
